FAERS Safety Report 6967506-2 (Version None)
Quarter: 2010Q3

REPORT INFORMATION
  Report Type: 
  Country: None (occurrence: None)
  Receive Date: 20100907
  Receipt Date: 20100827
  Transmission Date: 20110219
  Serious: Yes (Hospitalization)
  Sender: FDA-Public Use
  Company Number: JP-ASTRAZENECA-2010SE37824

PATIENT
  Age: 78 Year
  Sex: Male
  Weight: 53 kg

DRUGS (9)
  1. IRESSA [Suspect]
     Indication: NON-SMALL CELL LUNG CANCER
     Route: 048
     Dates: start: 20091209, end: 20100202
  2. IRESSA [Suspect]
     Route: 048
     Dates: start: 20100407, end: 20100512
  3. IRESSA [Suspect]
     Route: 048
     Dates: start: 20100707, end: 20100721
  4. TALION [Concomitant]
     Indication: ECZEMA
     Route: 048
     Dates: end: 20091218
  5. ZYRTEC [Concomitant]
     Indication: PHOTOSENSITIVITY REACTION
     Route: 048
     Dates: end: 20091218
  6. CELTECT [Concomitant]
     Indication: PHOTOSENSITIVITY REACTION
     Route: 048
     Dates: start: 20091219
  7. ATARAX [Concomitant]
     Indication: PHOTOSENSITIVITY REACTION
     Route: 048
     Dates: start: 20091219
  8. AMLODIPINE BESYLATE [Concomitant]
     Indication: HYPERTENSION
     Route: 048
     Dates: end: 20100106
  9. METHYCOBAL [Concomitant]
     Route: 048

REACTIONS (2)
  - GLOMERULONEPHRITIS RAPIDLY PROGRESSIVE [None]
  - HEPATIC FUNCTION ABNORMAL [None]
